FAERS Safety Report 4102145 (Version 7)
Quarter: 2020Q3

REPORT INFORMATION
  Report Type: Report from Study
  Country: NL (occurrence: NL)
  Receive Date: 20040225
  Receipt Date: 20040914
  Transmission Date: 20201105
  Serious: Yes (Death, Life-Threatening, Hospitalization)
  Sender: FDA-Public Use
  Company Number: NL-JNJFOC-20040202296

PATIENT
  Age: 38 Year
  Sex: Male

DRUGS (20)
  1. INFLIXIMAB [Suspect]
     Active Substance: INFLIXIMAB
     Route: 042
  2. INFLIXIMAB [Suspect]
     Active Substance: INFLIXIMAB
     Route: 042
  3. INFLIXIMAB [Suspect]
     Active Substance: INFLIXIMAB
     Route: 042
  4. VIOXX [Concomitant]
     Active Substance: ROFECOXIB
     Route: 049
  5. LOSEC [Concomitant]
     Active Substance: OMEPRAZOLE
     Route: 049
  6. INFLIXIMAB [Suspect]
     Active Substance: INFLIXIMAB
     Route: 042
  7. INFLIXIMAB [Suspect]
     Active Substance: INFLIXIMAB
     Route: 042
  8. EPREX [Concomitant]
     Active Substance: ERYTHROPOIETIN
  9. FERROUS FUMARATE [Concomitant]
     Active Substance: FERROUS FUMARATE
  10. OXYCONTIN [Concomitant]
     Active Substance: OXYCODONE HYDROCHLORIDE
  11. PARACETAMOL [Concomitant]
     Active Substance: ACETAMINOPHEN
  12. NADROPARIN CALCIUM [Concomitant]
     Active Substance: NADROPARIN CALCIUM
  13. INFLIXIMAB [Suspect]
     Active Substance: INFLIXIMAB
     Route: 042
  14. PANTOZOL [Concomitant]
     Active Substance: PANTOPRAZOLE SODIUM
  15. INFLIXIMAB [Suspect]
     Active Substance: INFLIXIMAB
     Route: 042
  16. INFLIXIMAB [Suspect]
     Active Substance: INFLIXIMAB
     Route: 042
  17. OMEPRAZOLE. [Concomitant]
     Active Substance: OMEPRAZOLE
     Route: 049
  18. ROFECOXIB [Concomitant]
     Active Substance: ROFECOXIB
     Indication: PAIN
     Route: 049
  19. INFLIXIMAB [Suspect]
     Active Substance: INFLIXIMAB
     Route: 042
  20. INFLIXIMAB [Suspect]
     Active Substance: INFLIXIMAB
     Indication: ANKYLOSING SPONDYLITIS
     Route: 042

REACTIONS (9)
  - Ventricular fibrillation [Fatal]
  - Bundle branch block left [None]
  - Large cell lung cancer [Not Recovered/Not Resolved]
  - QRS axis abnormal [None]
  - Ventricular extrasystoles [None]
  - Arrhythmia [None]
  - Coma [None]
  - Pulmonary embolism [Not Recovered/Not Resolved]
  - Supraventricular extrasystoles [None]

NARRATIVE: CASE EVENT DATE: 20040208
